FAERS Safety Report 26022539 (Version 2)
Quarter: 2025Q4

REPORT INFORMATION
  Report Type: Spontaneous
  Country: EU (occurrence: EU)
  Receive Date: 20251110
  Receipt Date: 20251113
  Transmission Date: 20260118
  Serious: Yes (Hospitalization, Other)
  Sender: FRESENIUS KABI
  Company Number: None

PATIENT
  Age: 28 Year
  Sex: Female

DRUGS (2)
  1. PROPOFOL [Suspect]
     Active Substance: PROPOFOL
     Indication: Endoscopy upper gastrointestinal tract
     Dosage: SIMULTANEOUSLY WITH SODIUM CHLORIDE BAXTER 0.9%?FOA- EMULSION FOR INJECTION
     Dates: end: 20251018
  2. SODIUM CHLORIDE [Suspect]
     Active Substance: SODIUM CHLORIDE
     Indication: Product used for unknown indication
     Dosage: SIMULTANEOUSLY WITH PROPOFOL MCT/LCT FRESENIUS?FOA- SOLUTION FOR INFUSION
     Dates: end: 20251018

REACTIONS (5)
  - Pyelonephritis [Unknown]
  - Renal pain [Unknown]
  - Asthenia [Unknown]
  - Pyrexia [Unknown]
  - Suspected product quality issue [Unknown]

NARRATIVE: CASE EVENT DATE: 20251001
